FAERS Safety Report 7990667-3 (Version None)
Quarter: 2011Q4

REPORT INFORMATION
  Report Type: 
  Country: None (occurrence: None)
  Receive Date: 20111219
  Receipt Date: 20111212
  Transmission Date: 20120403
  Serious: Yes (Other)
  Sender: FDA-Public Use
  Company Number: US-BAYER-2011-104572

PATIENT
  Age: 16 Year
  Sex: Female
  Weight: 49 kg

DRUGS (2)
  1. YAZ [Suspect]
     Indication: OVARIAN CYST
     Dosage: UNK
     Dates: start: 20080914, end: 20090929
  2. DEPO-PROVERA [Concomitant]
     Dosage: UNK
     Dates: start: 20090929

REACTIONS (3)
  - GALLBLADDER DISORDER [None]
  - CHOLECYSTITIS CHRONIC [None]
  - CHOLELITHIASIS [None]
